FAERS Safety Report 4905465-4 (Version None)
Quarter: 2006Q1

REPORT INFORMATION
  Report Type: 
  Country: None (occurrence: None)
  Receive Date: 20060208
  Receipt Date: 20060130
  Transmission Date: 20060701
  Serious: Yes (Other)
  Sender: FDA-Public Use
  Company Number: US-JNJFOC-20051000453

PATIENT
  Sex: Female
  Weight: 86.18 kg

DRUGS (11)
  1. REMICADE [Suspect]
     Route: 042
  2. REMICADE [Suspect]
     Indication: CROHN'S DISEASE
     Dosage: 5 VIALS, CURRENT GREATER THAN 6 MONTHS
     Route: 042
  3. METHOTREXATE [Suspect]
     Indication: DRUG USE FOR UNKNOWN INDICATION
  4. ANTIHISTAMINES [Concomitant]
     Indication: PREMEDICATION
  5. ANTIBIOTICS [Concomitant]
     Dosage: CURRENT, 3-6 MONTHS
  6. 6-MP [Concomitant]
     Dosage: CURRENT, 3- 6 MONTHS
  7. PREDNISONE [Concomitant]
     Dosage: CURRENT, 3-6 MONTHS
  8. PENTASA [Concomitant]
     Indication: CROHN'S DISEASE
  9. IMURAN [Concomitant]
     Indication: CROHN'S DISEASE
  10. BENEDRYL [Concomitant]
     Indication: PREMEDICATION
  11. STEROIDS [Concomitant]
     Indication: PREMEDICATION
     Route: 042

REACTIONS (4)
  - INFUSION RELATED REACTION [None]
  - NEUROTOXICITY [None]
  - PRURITUS [None]
  - URTICARIA [None]
